FAERS Safety Report 8020200-1 (Version None)
Quarter: 2012Q1

REPORT INFORMATION
  Report Type: 
  Country: None (occurrence: None)
  Receive Date: 20120103
  Receipt Date: 20111222
  Transmission Date: 20120608
  Serious: Yes (Other)
  Sender: FDA-Public Use
  Company Number: US-US-EMD SERONO, INC.-7101089

PATIENT
  Sex: Female
  Weight: 106 kg

DRUGS (18)
  1. REBIF [Suspect]
     Indication: MULTIPLE SCLEROSIS
     Route: 058
     Dates: start: 20040602
  2. RESTASIS OPTHALMIC EMULSION [Concomitant]
     Route: 047
     Dates: start: 20100819
  3. AMLODIPINE BESYLATE [Concomitant]
     Route: 048
     Dates: start: 20100819
  4. GABAPENTIN [Concomitant]
     Route: 048
     Dates: start: 20110603
  5. PROCHLORPERAZINE MALEATE [Concomitant]
     Route: 048
     Dates: start: 20100819
  6. PROVENTIL-HFA [Concomitant]
     Dates: start: 20100819
  7. CLONAZEPAM [Concomitant]
     Route: 048
     Dates: start: 20101101
  8. PULMICORT FLEXHALER [Concomitant]
     Dates: start: 20100819
  9. FORADIL [Concomitant]
     Dates: start: 20100819
  10. BENTYL [Concomitant]
     Dates: start: 20100819
  11. TIZANIDINE HCL [Concomitant]
     Dates: start: 20101109
  12. FERREX [Concomitant]
     Route: 048
     Dates: start: 20100819
  13. PANTOPRAZOLE SODIUM [Concomitant]
     Route: 048
     Dates: start: 20100819
  14. LEXAPRO [Concomitant]
     Route: 048
     Dates: start: 20100819
  15. KETOPROFEN [Concomitant]
     Route: 048
     Dates: start: 20100819
  16. LASIX [Concomitant]
     Route: 048
     Dates: start: 20100819
  17. REQUIP [Concomitant]
     Dates: start: 20110603
  18. METOPROLOL TARTRATE [Concomitant]
     Route: 048
     Dates: start: 20100819

REACTIONS (11)
  - ROTATOR CUFF SYNDROME [None]
  - EAR INJURY [None]
  - CATARACT OPERATION [None]
  - UPPER LIMB FRACTURE [None]
  - FALL [None]
  - GAIT DISTURBANCE [None]
  - EXOSTOSIS [None]
  - RESTLESS LEGS SYNDROME [None]
  - KNEE ARTHROPLASTY [None]
  - CYST [None]
  - ASTHMA [None]
